FAERS Safety Report 9863985 (Version 1)
Quarter: 2014Q1

REPORT INFORMATION
  Report Type: Report from Study
  Country: US (occurrence: US)
  Receive Date: 20140203
  Receipt Date: 20140203
  Transmission Date: 20141002
  Serious: Yes (Other)
  Sender: FDA-Public Use
  Company Number: PHHY2014US012694

PATIENT
  Sex: Female

DRUGS (3)
  1. GILENYA [Suspect]
     Indication: MULTIPLE SCLEROSIS
     Dosage: 0.5 MG, QD
     Route: 048
     Dates: start: 20110106
  2. CYMBALTA [Concomitant]
  3. HYDROCODONE [Concomitant]

REACTIONS (3)
  - Hemiplegia [Unknown]
  - Dysgraphia [Unknown]
  - Dysstasia [Unknown]
